APPROVED DRUG PRODUCT: FUROSEMIDE
Active Ingredient: FUROSEMIDE
Strength: 10MG/ML
Dosage Form/Route: INJECTABLE;INJECTION
Application: A070096 | Product #001
Applicant: IGI LABORATORIES INC
Approved: Sep 9, 1985 | RLD: No | RS: No | Type: DISCN